FAERS Safety Report 25804377 (Version 1)
Quarter: 2025Q3

REPORT INFORMATION
  Report Type: Spontaneous
  Country: TW (occurrence: TW)
  Receive Date: 20250915
  Receipt Date: 20250915
  Transmission Date: 20251020
  Serious: Yes (Death, Other)
  Sender: NOVARTIS
  Company Number: TW-002147023-NVSC2025TW078058

PATIENT
  Age: 71 Year
  Sex: Female

DRUGS (2)
  1. KYMRIAH [Suspect]
     Active Substance: TISAGENLECLEUCEL
     Indication: Product used for unknown indication
     Route: 042
  2. TOCILIZUMAB [Concomitant]
     Active Substance: TOCILIZUMAB
     Indication: Product used for unknown indication
     Route: 065

REACTIONS (3)
  - Leukopenia [Fatal]
  - Blood immunoglobulin G decreased [Fatal]
  - Cytokine release syndrome [Unknown]
